FAERS Safety Report 15186424 (Version 2)
Quarter: 2019Q1

REPORT INFORMATION
  Report Type: Report from Study
  Country: US (occurrence: US)
  Receive Date: 20180723
  Receipt Date: 20190130
  Transmission Date: 20190417
  Serious: No
  Sender: FDA-Public Use
  Company Number: US-EXELIXIS-CABO-18012572

PATIENT
  Sex: Male

DRUGS (8)
  1. CYANOCOBALAMIN. [Concomitant]
     Active Substance: CYANOCOBALAMIN
  2. CABOMETYX [Suspect]
     Active Substance: CABOZANTINIB S-MALATE
     Indication: RENAL CANCER
     Dosage: UNK
     Route: 048
  3. DIPHENHYDRAMIN [Concomitant]
     Active Substance: DIPHENHYDRAMINE
  4. FISH OIL [Concomitant]
     Active Substance: FISH OIL
  5. CABOMETYX [Suspect]
     Active Substance: CABOZANTINIB S-MALATE
     Dosage: 40 MG, UNK
  6. VITAMIN D [Concomitant]
     Active Substance: CHOLECALCIFEROL
  7. PRAVASTATIN. [Concomitant]
     Active Substance: PRAVASTATIN
  8. ASPIR 81 [Concomitant]
     Active Substance: ASPIRIN

REACTIONS (3)
  - Oral discomfort [Unknown]
  - Dry skin [Unknown]
  - Dysgeusia [Unknown]
